FAERS Safety Report 16799219 (Version 1)
Quarter: 2019Q3

REPORT INFORMATION
  Report Type: Spontaneous
  Country: US (occurrence: US)
  Receive Date: 20190912
  Receipt Date: 20190912
  Transmission Date: 20191005
  Serious: No
  Sender: FDA-Public Use
  Company Number: US-ELI_LILLY_AND_COMPANY-US201908009898

PATIENT
  Sex: Male

DRUGS (1)
  1. HUMALOG MIX75/25 [Suspect]
     Active Substance: INSULIN LISPRO
     Indication: DIABETES MELLITUS
     Dosage: 90 INTERNATIONAL UNIT, UNKNOWN
     Route: 058

REACTIONS (4)
  - Insulin autoimmune syndrome [Unknown]
  - Arthritis [Unknown]
  - Wrong technique in product usage process [Unknown]
  - Blood glucose increased [Unknown]
